FAERS Safety Report 11186806 (Version 1)
Quarter: 2015Q2

REPORT INFORMATION
  Report Type: Spontaneous
  Country: US (occurrence: US)
  Receive Date: 20150614
  Receipt Date: 20150614
  Transmission Date: 20150821
  Serious: No
  Sender: FDA-Public Use
  Company Number: US-ASTRAZENECA-2015SE44396

PATIENT
  Age: 23505 Day
  Sex: Female
  Weight: 61.2 kg

DRUGS (12)
  1. BYETTA [Suspect]
     Active Substance: EXENATIDE
     Indication: TYPE 1 DIABETES MELLITUS
     Route: 058
  2. SYNTHROID [Concomitant]
     Active Substance: LEVOTHYROXINE SODIUM
  3. MICARDIS [Concomitant]
     Active Substance: TELMISARTAN
     Route: 048
  4. BYDUREON [Suspect]
     Active Substance: EXENATIDE
     Indication: TYPE 1 DIABETES MELLITUS
     Route: 058
  5. CRESTOR [Suspect]
     Active Substance: ROSUVASTATIN CALCIUM
     Route: 048
     Dates: start: 2005
  6. HUMALOG [Concomitant]
     Active Substance: INSULIN LISPRO
     Indication: TYPE 1 DIABETES MELLITUS
     Dosage: AS REQUIRED
     Route: 058
  7. ORACEA [Concomitant]
     Active Substance: DOXYCYCLINE
     Indication: OCULAR ROSACEA
  8. LANTUS [Concomitant]
     Active Substance: INSULIN GLARGINE
     Indication: TYPE 1 DIABETES MELLITUS
     Dosage: TAKES 22 UNITS OF LANTUS IN THE MORNING
     Route: 058
  9. LOVEZA [Concomitant]
     Dosage: TWO TIMES A DAY
  10. MONTELUKAST [Concomitant]
     Active Substance: MONTELUKAST SODIUM
     Indication: SINUSITIS
     Route: 045
  11. NEXIUM [Suspect]
     Active Substance: ESOMEPRAZOLE MAGNESIUM
     Indication: DYSPEPSIA
     Route: 048
     Dates: start: 2001
  12. RESTASIS [Concomitant]
     Active Substance: CYCLOSPORINE
     Indication: OCULAR ROSACEA
     Dosage: DAILY

REACTIONS (11)
  - Sinusitis [Unknown]
  - Headache [Unknown]
  - Constipation [Unknown]
  - Diarrhoea [Unknown]
  - Dyspepsia [Unknown]
  - Feeding disorder [Unknown]
  - Nausea [Unknown]
  - Eructation [Unknown]
  - Flatulence [Unknown]
  - Drug administration error [Unknown]
  - Injection site haemorrhage [Recovered/Resolved]

NARRATIVE: CASE EVENT DATE: 20150511
